FAERS Safety Report 7261450-1 (Version None)
Quarter: 2011Q1

REPORT INFORMATION
  Report Type: 
  Country: None (occurrence: None)
  Receive Date: 20110130
  Receipt Date: 20100928
  Transmission Date: 20110831
  Serious: No
  Sender: FDA-Public Use
  Company Number: US-ABBOTT-10P-163-0674989-00

PATIENT
  Sex: Female

DRUGS (4)
  1. MINOCYCLINE HCL [Concomitant]
     Indication: ACNE
     Route: 048
  2. HUMIRA [Suspect]
     Indication: PSORIASIS
     Route: 058
     Dates: end: 20100910
  3. VALTREX [Concomitant]
     Indication: GENITAL HERPES
  4. SYNTHROID [Concomitant]
     Indication: HYPOTHYROIDISM
     Route: 048

REACTIONS (1)
  - DIZZINESS [None]
